FAERS Safety Report 10574240 (Version 1)
Quarter: 2014Q4

REPORT INFORMATION
  Report Type: Spontaneous
  Country: US (occurrence: US)
  Receive Date: 20141110
  Receipt Date: 20141110
  Transmission Date: 20150529
  Serious: Yes (Death, Other)
  Sender: FDA-Public Use
  Company Number: US-MERCK-1411USA003597

PATIENT

DRUGS (3)
  1. SINGULAIR [Suspect]
     Active Substance: MONTELUKAST SODIUM
     Indication: RHINORRHOEA
  2. SINGULAIR [Suspect]
     Active Substance: MONTELUKAST SODIUM
     Indication: WHEEZING
  3. SINGULAIR [Suspect]
     Active Substance: MONTELUKAST SODIUM
     Indication: ASTHMA
     Dosage: UNK
     Route: 048

REACTIONS (10)
  - Muscle twitching [Unknown]
  - Aggression [Unknown]
  - Intentional self-injury [Unknown]
  - Fear [Unknown]
  - Enuresis [Unknown]
  - Mental disorder [Unknown]
  - Stereotypy [Unknown]
  - Completed suicide [Fatal]
  - Excessive eye blinking [Unknown]
  - Suicide attempt [Unknown]
